FAERS Safety Report 8567624-1 (Version None)
Quarter: 2012Q3

REPORT INFORMATION
  Report Type: 
  Country: None (occurrence: None)
  Receive Date: 20120803
  Receipt Date: 20120726
  Transmission Date: 20120928
  Serious: Yes (Hospitalization)
  Sender: FDA-Public Use
  Company Number: DE-AMGEN-DEUCT2012046877

PATIENT
  Age: 56 Year
  Sex: Female
  Weight: 59 kg

DRUGS (4)
  1. EPIRUBICIN [Concomitant]
     Indication: GASTRIC CANCER
     Dosage: 50 MG/M2, UNK
     Route: 042
     Dates: start: 20120309
  2. CISPLATIN [Concomitant]
     Indication: GASTRIC CANCER
     Dosage: 60 MG/M2, UNK
     Route: 042
     Dates: start: 20120309
  3. CAPECITABINE [Concomitant]
     Indication: GASTRIC CANCER
     Dosage: 625 MG/M2, UNK
     Route: 048
     Dates: start: 20120309
  4. PANITUMUMAB [Suspect]
     Indication: GASTRIC CANCER
     Dosage: 9 MG/KG, UNK
     Route: 042
     Dates: start: 20120309

REACTIONS (4)
  - HYPOCALCAEMIA [None]
  - HYPOKALAEMIA [None]
  - VOMITING [None]
  - NAUSEA [None]
